FAERS Safety Report 4816878-3 (Version None)
Quarter: 2005Q4

REPORT INFORMATION
  Report Type: 
  Country: None (occurrence: None)
  Receive Date: 20051031
  Receipt Date: 20051031
  Transmission Date: 20060501
  Serious: Yes (Hospitalization)
  Sender: FDA-Public Use
  Company Number: None

PATIENT
  Age: 72 Year

DRUGS (14)
  1. FUROSEMIDE [Suspect]
     Indication: HYPERTENSION
     Dosage: 40 MG QAM
     Dates: start: 20031201
  2. TERAZOSIN [Suspect]
     Indication: BENIGN PROSTATIC HYPERPLASIA
     Dosage: 10 MG Q HS
     Dates: start: 19980301
  3. METOPROLOL [Concomitant]
  4. AZITHROMYCIN [Concomitant]
  5. OMEPRAZOLE [Concomitant]
  6. TRAMADOL [Concomitant]
  7. CHLORDIAZEPOXIDE [Concomitant]
  8. POTASSIUM CHLORIDE [Concomitant]
  9. FES04 [Concomitant]
  10. MAALOX FAST BLOCKER [Concomitant]
  11. ASPIRIN [Concomitant]
  12. FOSINOPRIL SODIUM [Concomitant]
  13. DIAZEPAM [Concomitant]
  14. ZOCOR [Concomitant]

REACTIONS (1)
  - ORTHOSTATIC HYPOTENSION [None]
